FAERS Safety Report 5499671-0 (Version None)
Quarter: 2007Q4

REPORT INFORMATION
  Report Type: 
  Country: None (occurrence: None)
  Receive Date: 20071026
  Receipt Date: 20071015
  Transmission Date: 20080405
  Serious: Yes (Hospitalization)
  Sender: FDA-Public Use
  Company Number: IT-PFIZER INC-2007086494

PATIENT
  Sex: Female
  Weight: 73 kg

DRUGS (6)
  1. SU-011,248 [Suspect]
     Indication: RENAL CELL CARCINOMA STAGE UNSPECIFIED
     Route: 048
  2. MEPRAL [Concomitant]
     Route: 048
  3. CREON [Concomitant]
     Route: 048
  4. LEVOPRAID [Concomitant]
     Route: 048
  5. ELITEN [Concomitant]
     Route: 048
  6. DELTACORTENE [Concomitant]
     Route: 048

REACTIONS (1)
  - URINARY TRACT INFECTION [None]
